FAERS Safety Report 11079763 (Version 1)
Quarter: 2015Q2

REPORT INFORMATION
  Report Type: Spontaneous
  Country: US (occurrence: US)
  Receive Date: 20150430
  Receipt Date: 20150430
  Transmission Date: 20150821
  Serious: No
  Sender: FDA-Public Use
  Company Number: US-ELI_LILLY_AND_COMPANY-US201504005028

PATIENT
  Sex: Female

DRUGS (1)
  1. EVISTA [Suspect]
     Active Substance: RALOXIFENE HYDROCHLORIDE
     Indication: BONE DENSITY ABNORMAL
     Dosage: UNK, UNKNOWN
     Route: 065

REACTIONS (1)
  - Bone density abnormal [Not Recovered/Not Resolved]
